FAERS Safety Report 14142472 (Version 1)
Quarter: 2017Q4

REPORT INFORMATION
  Report Type: Spontaneous
  Country: US (occurrence: US)
  Receive Date: 20171030
  Receipt Date: 20171030
  Transmission Date: 20180321
  Serious: No
  Sender: FDA-Public Use
  Company Number: US-ASTRAZENECA-2017SF05171

PATIENT
  Age: 31374 Day
  Sex: Female
  Weight: 70.3 kg

DRUGS (12)
  1. IRBESARTAN. [Concomitant]
     Active Substance: IRBESARTAN
     Indication: BLOOD PRESSURE ABNORMAL
     Dosage: DAILY
     Route: 048
  2. FISH OIL [Concomitant]
     Active Substance: FISH OIL
     Indication: EATING DISORDER
     Route: 048
  3. SUPER B COMPLEX [Concomitant]
     Active Substance: CYANOCOBALAMIN\DEXPANTHENOL\NIACINAMIDE\PYRIDOXINE HYDROCHLORIDE\RIBOFLAVIN 5^-PHOSPHATE SODIUM\THIAMINE HYDROCHLORIDE\VITAMIN B COMPLEX
     Indication: SUPPLEMENTATION THERAPY
     Dosage: 1 DAILY
     Route: 048
  4. VITAMIN D3 [Concomitant]
     Active Substance: CHOLECALCIFEROL
     Indication: BONE DISORDER
     Route: 048
  5. BOTOX [Concomitant]
     Active Substance: ONABOTULINUMTOXINA
     Indication: MICTURITION DISORDER
     Dosage: EVERY SIX MONTHS
  6. CRANBERRY VITAMINS [Concomitant]
     Indication: URINARY TRACT INFECTION
     Route: 048
  7. BAYER ASPIRIN [Concomitant]
     Active Substance: ASPIRIN
     Indication: CARDIAC DISORDER
     Route: 048
  8. BEVESPI AEROSPHERE [Suspect]
     Active Substance: FORMOTEROL FUMARATE\GLYCOPYRROLATE
     Indication: PULMONARY FUNCTION TEST NORMAL
     Dosage: 9/4.8, 2 PUFFS TWICE A DAY
     Route: 055
     Dates: start: 201710, end: 20171010
  9. CALCIUM AND D3 [Concomitant]
     Indication: BONE DISORDER
     Route: 048
  10. MULTIVITAMIN [Concomitant]
     Active Substance: VITAMINS
     Indication: EATING DISORDER
     Dosage: DAILY
     Route: 048
  11. TRIPLE FLEX [Concomitant]
     Indication: NEUROPATHY PERIPHERAL
     Dosage: TWO TIMES A DAY
     Route: 048
  12. UBIQUINOL [Concomitant]
     Active Substance: UBIQUINOL
     Indication: CARDIAC DISORDER
     Dosage: 100.0MG UNKNOWN
     Route: 048

REACTIONS (10)
  - Off label use [Unknown]
  - Intentional product misuse [Unknown]
  - Product use in unapproved indication [Unknown]
  - Asthenia [Unknown]
  - Nausea [Unknown]
  - Syncope [Unknown]
  - Visual impairment [Unknown]
  - Dizziness [Unknown]
  - Cough [Unknown]
  - Body height decreased [Unknown]

NARRATIVE: CASE EVENT DATE: 20171010
